FAERS Safety Report 14265156 (Version 1)
Quarter: 2017Q4

REPORT INFORMATION
  Report Type: Spontaneous
  Country: US (occurrence: US)
  Receive Date: 20171208
  Receipt Date: 20171208
  Transmission Date: 20180321
  Serious: No
  Sender: FDA-Public Use
  Company Number: US-PTC THERAPEUTICS, INC.-US-2017PTC001409

PATIENT

DRUGS (1)
  1. EMFLAZA [Suspect]
     Active Substance: DEFLAZACORT
     Indication: PRODUCT USED FOR UNKNOWN INDICATION
     Dosage: 18 MG, QD
     Route: 048
     Dates: start: 20170621

REACTIONS (2)
  - Pruritus [Unknown]
  - Hot flush [Unknown]

NARRATIVE: CASE EVENT DATE: 201709
